FAERS Safety Report 12927566 (Version 1)
Quarter: 2016Q4

REPORT INFORMATION
  Report Type: Spontaneous
  Country: US (occurrence: US)
  Receive Date: 20161109
  Receipt Date: 20161109
  Transmission Date: 20170207
  Serious: Yes (Life-Threatening, Hospitalization)
  Sender: FDA-Public Use
  Company Number: None

PATIENT
  Age: 34 Year
  Sex: Female
  Weight: 49.5 kg

DRUGS (1)
  1. NOVOLOG [Suspect]
     Active Substance: INSULIN ASPART
     Indication: DIABETES MELLITUS
     Dosage: ?          QUANTITY:9 CAPSULE(S);?
     Route: 058
     Dates: start: 20161006, end: 20161007

REACTIONS (5)
  - Vomiting [None]
  - Blood glucose increased [None]
  - Drug ineffective [None]
  - Diabetic ketoacidosis [None]
  - Product quality issue [None]

NARRATIVE: CASE EVENT DATE: 20161006
